FAERS Safety Report 7077370-1 (Version None)
Quarter: 2010Q4

REPORT INFORMATION
  Report Type: 
  Country: None (occurrence: None)
  Receive Date: 20101029
  Receipt Date: 20101029
  Transmission Date: 20110411
  Serious: Yes (Other)
  Sender: FDA-Public Use
  Company Number: None

PATIENT
  Age: 32 Year
  Sex: Male
  Weight: 96.1626 kg

DRUGS (2)
  1. XANAX [Suspect]
     Indication: ANXIETY
     Dosage: 1MG WHEN NEEDED PO
     Route: 048
     Dates: start: 20100827, end: 20101110
  2. XANAX [Suspect]
     Indication: PLASTIC SURGERY
     Dosage: 1MG WHEN NEEDED PO
     Route: 048
     Dates: start: 20100827, end: 20101110

REACTIONS (3)
  - ANGER [None]
  - SELF-INJURIOUS IDEATION [None]
  - SUICIDAL IDEATION [None]
